FAERS Safety Report 9516758 (Version 2)
Quarter: 2013Q4

REPORT INFORMATION
  Report Type: Spontaneous
  Country: US (occurrence: US)
  Receive Date: 20130911
  Receipt Date: 20131211
  Transmission Date: 20140711
  Serious: Yes (Hospitalization)
  Sender: FDA-Public Use
  Company Number: US-BAYER-2013-109608

PATIENT
  Age: 24 Year
  Sex: Female

DRUGS (18)
  1. YAZ [Suspect]
     Dosage: UNK
     Dates: start: 2009, end: 201008
  2. NEURONTIN [Concomitant]
  3. PAMELOR [Concomitant]
     Dosage: 25 MG, UNK
  4. HAEMORRHOIDAL [Concomitant]
  5. AMOXICILLIN [Concomitant]
     Dosage: 500 MG, UNK
  6. BIAXIN [Concomitant]
     Dosage: 500 MG, UNK
  7. PRILOSEC [Concomitant]
     Dosage: 20 MG, UNK
  8. CEFAZOLIN [Concomitant]
     Dosage: 1 G, UNK
  9. ZYRTEC [Concomitant]
     Dosage: 10 MG, UNK
  10. VICODIN [Concomitant]
  11. OXYCONTIN [Concomitant]
     Dosage: 10 MG, UNK
  12. SURFAK STOOL SOFTENER [Concomitant]
     Dosage: 240 MG, UNK
  13. PHENERGAN [Concomitant]
     Dosage: 25 MG, UNK
  14. ASPIRIN [Concomitant]
     Dosage: 325 MG, UNK
  15. CELEBREX [Concomitant]
     Dosage: 200 MG, UNK
  16. BENADRYL [Concomitant]
     Dosage: 25 MG, UNK
  17. ATARAX [Concomitant]
     Dosage: 10 MG, UNK
  18. MULTIVITAMIN [Concomitant]

REACTIONS (1)
  - Deep vein thrombosis [None]
